FAERS Safety Report 6973500-8 (Version None)
Quarter: 2010Q3

REPORT INFORMATION
  Report Type: 
  Country: None (occurrence: None)
  Receive Date: 20100909
  Receipt Date: 20100901
  Transmission Date: 20110219
  Serious: Yes (Hospitalization)
  Sender: FDA-Public Use
  Company Number: JP-BRISTOL-MYERS SQUIBB COMPANY-13971361

PATIENT
  Age: 40 Year
  Sex: Male

DRUGS (10)
  1. STOCRIN CAPS [Suspect]
     Indication: HIV INFECTION
     Dosage: INTERRUPTED ON 21DEC04 RESTARTED 09DEC05 DISCONT 11JUL07.RESTARTED 17JUL09 DISCONT16OCT09
     Route: 048
     Dates: start: 20040614, end: 20091016
  2. REYATAZ [Suspect]
     Indication: HIV INFECTION
     Dosage: INTERRUPTED ON 21JAN05. RESTARTED ON 22JUN05. DISCONTINUED ON 10MAY07
     Route: 048
     Dates: start: 20041221, end: 20070510
  3. EPIVIR [Suspect]
     Indication: HIV INFECTION
     Dosage: TABS. 150MGBID 22JUL05.INTERRUPTED ON 02AUG05.300MG/DAY FROM 03AUG05. DISCONTINUED ON 13DEC07
     Route: 048
     Dates: start: 20050722, end: 20071213
  4. NORVIR [Suspect]
     Indication: HIV INFECTION
     Dosage: CAPS. INTERRUPTED ON 21JAN05.RESTARTED ON 22JUN05-10MAY07
     Route: 048
     Dates: start: 20041221, end: 20070510
  5. VIREAD [Suspect]
     Indication: HIV INFECTION
     Dosage: TABS
     Route: 048
     Dates: start: 20050802, end: 20071213
  6. COMBIVIR [Suspect]
     Indication: HIV INFECTION
     Dosage: INTERRUPTED ON 21JAN05. RESTARTED ON 22JUN05-22JUL05
     Dates: start: 20040514, end: 20050722
  7. KALETRA [Suspect]
     Indication: HIV INFECTION
     Dosage: INTERRUPTED ON 30MAY04. RESTARTED ON 11MAY07;DISCONITNUED ON 16OCT09
     Route: 048
     Dates: start: 20040514, end: 20091016
  8. RETROVIR [Suspect]
     Dates: start: 20050722, end: 20050802
  9. ISENTRESS [Suspect]
     Indication: HIV INFECTION
     Dosage: INITIATED ON 16-OCT-2009
  10. TRUVADA [Suspect]
     Indication: HIV INFECTION
     Dosage: INITIATED ON 14-DEC-2007, 1 DOSAGE FORM = 1 TABLET DAILY
     Route: 048

REACTIONS (1)
  - DIABETES MELLITUS [None]
